FAERS Safety Report 4305859-4 (Version None)
Quarter: 2004Q1

REPORT INFORMATION
  Report Type: 
  Country: None (occurrence: None)
  Receive Date: 20040225
  Receipt Date: 20031201
  Transmission Date: 20041129
  Serious: Yes (Death)
  Sender: FDA-Public Use
  Company Number: A01200305743

PATIENT
  Age: 54 Year
  Sex: Male

DRUGS (2)
  1. PLAVIX [Suspect]
     Dosage: 75 MG OD, ORAL
     Route: 048
     Dates: start: 19980101, end: 20031015
  2. BENESTAN - SLOW RELEASE - (ALFUZOSIN HYDROCHLORIDE) - TABLET PR - 5 MG [Suspect]
     Dosage: 5 MG OD, ORAL
     Route: 048
     Dates: end: 20031015

REACTIONS (7)
  - BRAIN DEATH [None]
  - CEREBRAL HAEMORRHAGE [None]
  - CEREBRAL INFARCTION [None]
  - COMA [None]
  - DIZZINESS [None]
  - INTRAVENTRICULAR HAEMORRHAGE [None]
  - MYDRIASIS [None]
